FAERS Safety Report 6869516-2 (Version None)
Quarter: 2010Q3

REPORT INFORMATION
  Report Type: 
  Country: None (occurrence: None)
  Receive Date: 20100722
  Receipt Date: 20080805
  Transmission Date: 20110219
  Serious: No
  Sender: FDA-Public Use
  Company Number: US-PFIZER INC-2008066202

PATIENT
  Age: 41 Year
  Sex: Female

DRUGS (6)
  1. CHANTIX [Suspect]
  2. NAPROXEN [Concomitant]
  3. HYDROCODONE [Concomitant]
  4. MAXALT [Concomitant]
  5. AMBIEN [Concomitant]
  6. ALL OTHER THERAPEUTIC PRODUCTS [Concomitant]

REACTIONS (1)
  - NAUSEA [None]
